FAERS Safety Report 9467990 (Version 1)
Quarter: 2013Q3

REPORT INFORMATION
  Report Type: Spontaneous
  Country: US (occurrence: US)
  Receive Date: 20130821
  Receipt Date: 20130821
  Transmission Date: 20140515
  Serious: Yes (Other)
  Sender: FDA-Public Use
  Company Number: US-BAYER-2013-099396

PATIENT
  Age: 66 Year
  Sex: Female

DRUGS (2)
  1. MAGNEVIST [Suspect]
     Indication: NUCLEAR MAGNETIC RESONANCE IMAGING BRAIN
     Dosage: 20 CC^S ADMINISTERED I.V. LEFT ANTICUBITAL
     Route: 042
     Dates: start: 20130813, end: 20130813
  2. MAGNEVIST [Suspect]
     Indication: NUCLEAR MAGNETIC RESONANCE IMAGING BRAIN
     Dosage: 20 CC^S ADMINISTERED I.V. LEFT ANTICUBITAL
     Route: 042
     Dates: start: 20130813, end: 20130813

REACTIONS (3)
  - Vomiting [None]
  - Aspiration [None]
  - Nausea [None]
